FAERS Safety Report 5201744-4 (Version None)
Quarter: 2006Q4

REPORT INFORMATION
  Report Type: 
  Country: None (occurrence: None)
  Receive Date: 20061013
  Receipt Date: 20050818
  Transmission Date: 20070319
  Serious: Yes (Other)
  Sender: FDA-Public Use
  Company Number: S05-USA-04043-01

PATIENT
  Age: 42 Year
  Sex: Female

DRUGS (15)
  1. LEXAPRO [Suspect]
     Indication: DEPRESSION
     Dosage: 40 MG QHS PO
     Route: 048
     Dates: start: 20050810, end: 20050818
  2. LEXAPRO [Suspect]
     Indication: DEPRESSION
     Dosage: 30 MG QHS PO
     Route: 048
     Dates: start: 20050819, end: 20050821
  3. LEXAPRO [Suspect]
     Indication: DEPRESSION
     Dosage: 20 MG QHS PO
     Route: 048
     Dates: start: 20050822, end: 20050101
  4. LEXAPRO [Suspect]
     Indication: DEPRESSION
     Dosage: 30 MG QHS PO
     Route: 048
     Dates: start: 20050101
  5. LEXAPRO [Suspect]
     Indication: DEPRESSION
     Dosage: 20 MG QHS PO
     Route: 048
     Dates: end: 20050624
  6. LEXAPRO [Suspect]
     Indication: DEPRESSION
     Dosage: 10 MG QHS PO
     Route: 048
     Dates: start: 20020101
  7. LEXAPRO [Suspect]
     Indication: DEPRESSION
     Dosage: 20 MG QHS PO
     Route: 048
     Dates: start: 20050701, end: 20050809
  8. CYMBALTA [Suspect]
     Indication: DEPRESSION
     Dosage: 30 MG QD
     Dates: start: 20050610, end: 20050630
  9. CYMBALTA [Suspect]
     Indication: DEPRESSION
     Dosage: 60 MG QD
     Dates: start: 20050701, end: 20050101
  10. CYMBALTA [Suspect]
     Indication: DEPRESSION
     Dosage: 60 MG QD
     Dates: start: 20050101, end: 20050813
  11. LORAZEPAM [Concomitant]
  12. SYNTHROID [Concomitant]
  13. BENADRYL [Concomitant]
  14. FLONASE [Concomitant]
  15. ACYCLOVIR [Concomitant]

REACTIONS (9)
  - AGITATION [None]
  - DRUG INEFFECTIVE [None]
  - HOSTILITY [None]
  - HOT FLUSH [None]
  - HYPERHIDROSIS [None]
  - NIGHTMARE [None]
  - SOMNOLENCE [None]
  - SUICIDAL IDEATION [None]
  - TREMOR [None]
